FAERS Safety Report 20840065 (Version 2)
Quarter: 2022Q2

REPORT INFORMATION
  Report Type: Report from Study
  Country: CA (occurrence: CA)
  Receive Date: 20220517
  Receipt Date: 20220602
  Transmission Date: 20220720
  Serious: Yes (Other)
  Sender: FDA-Public Use
  Company Number: CA-BAYER-2022A068754

PATIENT
  Age: 46 Year
  Sex: Female

DRUGS (1)
  1. STIVARGA [Suspect]
     Active Substance: REGORAFENIB
     Indication: Colorectal cancer metastatic
     Dosage: UNK
     Dates: start: 20220502, end: 20220505

REACTIONS (5)
  - Colorectal cancer metastatic [Unknown]
  - Delirium [None]
  - Hepatic pain [None]
  - Movement disorder [None]
  - Pyrexia [None]

NARRATIVE: CASE EVENT DATE: 20220505
